FAERS Safety Report 15899589 (Version 10)
Quarter: 2021Q1

REPORT INFORMATION
  Report Type: Spontaneous
  Country: US (occurrence: US)
  Receive Date: 20190201
  Receipt Date: 20210315
  Transmission Date: 20210419
  Serious: Yes (Other)
  Sender: FDA-Public Use
  Company Number: US-PFIZER INC-2018359420

PATIENT
  Age: 75 Year
  Sex: Male
  Weight: 110 kg

DRUGS (11)
  1. LYRICA [Suspect]
     Active Substance: PREGABALIN
     Indication: NEUROPATHY PERIPHERAL
     Dosage: 50 MG, 3X/DAY
     Route: 048
     Dates: start: 20181026
  2. LYRICA [Suspect]
     Active Substance: PREGABALIN
     Indication: SACROILIITIS
     Dosage: 1(ONE)? 2(TWO) CAPSULE THREE TIMES DAILY
     Dates: start: 20191121
  3. LYRICA [Suspect]
     Active Substance: PREGABALIN
     Indication: SPINAL DISORDER
     Dosage: 750 MG, DAILY (100 MG AND 150 MG, THREE TIMES A DAY)
     Route: 048
     Dates: start: 20190411, end: 2019
  4. LYRICA [Suspect]
     Active Substance: PREGABALIN
     Indication: PAIN
     Dosage: 150 MG, 1X/DAY (ONE 150MG A DAY)
     Route: 048
  5. LYRICA [Suspect]
     Active Substance: PREGABALIN
     Indication: VERTEBRAL FORAMINAL STENOSIS
     Dosage: 150 MG, 2X/DAY (STRENGTH: 75 MG, 2 (TWO) CAPSULES TWICE A DAY)
     Route: 048
  6. LYRICA [Suspect]
     Active Substance: PREGABALIN
     Indication: BACK PAIN
     Dosage: 150 MG, AS NEEDED (1 (ONE) TABLET EVERY 6 HOURS AS NEEDED)
  7. ROBAXIN [Concomitant]
     Active Substance: METHOCARBAMOL
     Indication: PAIN
     Dosage: UNK
  8. ROBAXIN [Concomitant]
     Active Substance: METHOCARBAMOL
     Indication: MUSCLE SPASMS
  9. LYRICA [Suspect]
     Active Substance: PREGABALIN
     Indication: POLYNEUROPATHY
     Dosage: 200 MG, DAILY (TWO IN THE MORNING, TWO AT NIGHT)
     Route: 048
  10. LYRICA [Suspect]
     Active Substance: PREGABALIN
     Indication: POST LAMINECTOMY SYNDROME
     Dosage: 150 MG, 3X/DAY
     Route: 048
  11. LYRICA [Suspect]
     Active Substance: PREGABALIN
     Indication: SCIATICA
     Dosage: 150 MG, 2X/DAY (TAKE 1 CAPSULE BY MOUTH TWO TIMES DAILY)
     Route: 048

REACTIONS (4)
  - Prescribed overdose [Unknown]
  - Pain [Unknown]
  - Intentional product use issue [Unknown]
  - Renal impairment [Unknown]

NARRATIVE: CASE EVENT DATE: 20190411
